FAERS Safety Report 9992753 (Version 1)
Quarter: 2014Q1

REPORT INFORMATION
  Report Type: Report from Study
  Country: US (occurrence: US)
  Receive Date: 20140310
  Receipt Date: 20140310
  Transmission Date: 20141002
  Serious: Yes (Other)
  Sender: FDA-Public Use
  Company Number: PHEH2014US004706

PATIENT
  Sex: Male

DRUGS (1)
  1. TOBI [Suspect]
     Indication: CHRONIC OBSTRUCTIVE PULMONARY DISEASE
     Dosage: 300 MG, BID
     Route: 055

REACTIONS (4)
  - Diabetes mellitus [Unknown]
  - Pseudomonas infection [Unknown]
  - Cardiac disorder [Unknown]
  - General physical health deterioration [Unknown]
